FAERS Safety Report 5613372-7 (Version None)
Quarter: 2008Q1

REPORT INFORMATION
  Report Type: 
  Country: None (occurrence: None)
  Receive Date: 20080129
  Receipt Date: 20080110
  Transmission Date: 20080703
  Serious: Yes (Death)
  Sender: FDA-Public Use
  Company Number: 2008EU000140

PATIENT
  Age: 1 Year
  Sex: Male

DRUGS (3)
  1. TACROLIMUS [Suspect]
     Indication: LIVER TRANSPLANT
  2. PREDNISONE [Suspect]
     Indication: LIVER TRANSPLANT
  3. FLUCONAZOLE [Concomitant]

REACTIONS (1)
  - ASPERGILLOSIS [None]
